FAERS Safety Report 18920381 (Version 1)
Quarter: 2021Q1

REPORT INFORMATION
  Report Type: Spontaneous
  Country: GB (occurrence: GB)
  Receive Date: 20210222
  Receipt Date: 20210222
  Transmission Date: 20210420
  Serious: Yes (Hospitalization)
  Sender: FDA-Public Use
  Company Number: GB-DRREDDYS-GER/UKI/21/0132078

PATIENT
  Age: 41 Year
  Sex: Female

DRUGS (3)
  1. CIPROFLOXACIN. [Suspect]
     Active Substance: CIPROFLOXACIN
     Indication: UROSEPSIS
  2. ZAPONEX [Suspect]
     Active Substance: CLOZAPINE
     Indication: PRODUCT USED FOR UNKNOWN INDICATION
     Route: 048
     Dates: start: 20050817, end: 20210127
  3. ZAPONEX [Suspect]
     Active Substance: CLOZAPINE
     Route: 048
     Dates: start: 20210128

REACTIONS (4)
  - Leukopenia [Recovered/Resolved]
  - Urosepsis [Recovering/Resolving]
  - Pulmonary embolism [Recovering/Resolving]
  - Neutrophil count decreased [Recovered/Resolved]

NARRATIVE: CASE EVENT DATE: 20210127
